FAERS Safety Report 25873418 (Version 1)
Quarter: 2025Q4

REPORT INFORMATION
  Report Type: Spontaneous
  Country: US (occurrence: None)
  Receive Date: 20251001
  Receipt Date: 20251001
  Transmission Date: 20260118
  Serious: Yes (Other)
  Sender: FDA-CTU
  Company Number: None

PATIENT
  Age: 53 Year
  Sex: Female
  Weight: 60.3 kg

DRUGS (6)
  1. MELOXICAM [Suspect]
     Active Substance: MELOXICAM
     Indication: Inflammation
     Dosage: OTHER QUANTITY : 1 TABLET(S);?FREQUENCY : DAILY;?
     Route: 048
     Dates: start: 20250709, end: 20250710
  2. LIPITOR [Concomitant]
     Active Substance: ATORVASTATIN CALCIUM
  3. STOOL SOFTENER (DOCUSATE) [Concomitant]
     Active Substance: DOCUSATE
  4. FISH OIL [Concomitant]
     Active Substance: FISH OIL
  5. BIOTIN [Concomitant]
     Active Substance: BIOTIN
  6. children^s multivitamin [Concomitant]

REACTIONS (2)
  - Urinary tract infection [None]
  - Blood urine present [None]

NARRATIVE: CASE EVENT DATE: 20250709
